FAERS Safety Report 6055872-4 (Version None)
Quarter: 2009Q1

REPORT INFORMATION
  Report Type: 
  Country: None (occurrence: None)
  Receive Date: 20090126
  Receipt Date: 20090108
  Transmission Date: 20090719
  Serious: Yes (Hospitalization)
  Sender: FDA-Public Use
  Company Number: 136544

PATIENT
  Age: 67 Year
  Sex: Male
  Weight: 75 kg

DRUGS (1)
  1. (MORPHINE) [Suspect]
     Indication: CHEST PAIN
     Dosage: 5 MG, STATUM AS NECESSARY, INTRAVENOUS
     Route: 042
     Dates: start: 20090104, end: 20090104

REACTIONS (3)
  - AMNESIA [None]
  - BRADYCARDIA [None]
  - FLUSHING [None]
